FAERS Safety Report 5466819-3 (Version None)
Quarter: 2007Q3

REPORT INFORMATION
  Report Type: 
  Country: None (occurrence: None)
  Receive Date: 20070924
  Receipt Date: 20070924
  Transmission Date: 20080115
  Serious: No
  Sender: FDA-Public Use
  Company Number: None

PATIENT
  Age: 23 Year
  Sex: Female
  Weight: 131.5431 kg

DRUGS (1)
  1. ZIPRASIDONE HCL [Suspect]
     Dosage: 80 MG BID PO
     Route: 048
     Dates: start: 20070621, end: 20070629

REACTIONS (1)
  - DYSTONIA [None]
